FAERS Safety Report 4607257-2 (Version None)
Quarter: 2005Q1

REPORT INFORMATION
  Report Type: 
  Country: None (occurrence: None)
  Receive Date: 20050314
  Receipt Date: 20050304
  Transmission Date: 20050727
  Serious: Yes (Life-Threatening, Hospitalization, Disabling, Other)
  Sender: FDA-Public Use
  Company Number: US-MERCK-0503USA00760

PATIENT
  Age: 57 Year
  Sex: Male

DRUGS (7)
  1. INVANZ [Suspect]
     Indication: OSTEOMYELITIS
     Route: 042
     Dates: start: 20050101, end: 20050224
  2. PHENERGAN (DIBROMPROPAMIDINE ISETHIONATE (+) PROMETHAZINE) [Suspect]
     Route: 065
  3. GABAPENTIN [Concomitant]
     Route: 065
  4. OXYCONTIN [Concomitant]
     Route: 065
  5. OXYCODONE [Concomitant]
     Route: 065
  6. PROMETHAZINE [Concomitant]
     Route: 065
  7. TYLENOL (CAPLET) [Concomitant]
     Route: 065

REACTIONS (8)
  - CLONIC CONVULSION [None]
  - CONFUSIONAL STATE [None]
  - DELIRIUM [None]
  - MENTAL STATUS CHANGES [None]
  - MYOCLONUS [None]
  - SEDATION [None]
  - SLEEP DISORDER [None]
  - URINARY TRACT INFECTION ENTEROCOCCAL [None]
